FAERS Safety Report 8911600 (Version 2)
Quarter: 2013Q1

REPORT INFORMATION
  Report Type: Spontaneous
  Country: BR (occurrence: BR)
  Receive Date: 20121115
  Receipt Date: 20130122
  Transmission Date: 20140127
  Serious: Yes (Other)
  Sender: FDA-Public Use
  Company Number: BR-PFIZER INC-2012282802

PATIENT
  Age: 78 Year
  Sex: Female
  Weight: 88 kg

DRUGS (16)
  1. EFEXOR XR [Suspect]
     Indication: DEPRESSION
     Dosage: 75 MG, 1X/DAY
     Route: 048
     Dates: start: 2004, end: 201207
  2. ACLASTA [Concomitant]
     Indication: BACK DISORDER
     Dosage: ONE INJECTION ONCE A YEAR
     Dates: start: 2011
  3. ARTRODAR [Concomitant]
     Indication: OSTEOARTHRITIS
     Dosage: ONE TABLET, 1X/DAY
  4. CONDROFLEX [Concomitant]
     Indication: MINERAL SUPPLEMENTATION
     Dosage: 1 SACHET DAILY
     Dates: start: 2011
  5. DEPAKOTE [Concomitant]
     Indication: DEPRESSION
     Dosage: 1 TABLET, 1X/DAY
     Dates: start: 2004
  6. DIOSMIN [Concomitant]
     Indication: VARICOSE VEIN
     Dosage: 1 SACHET 1X/DAY
     Dates: start: 201203
  7. LOSARTAN [Concomitant]
     Indication: HYPERTENSION
     Dosage: 1 TABLET, 1X/DAY
     Dates: start: 2002
  8. METFORMIN [Concomitant]
     Indication: DIABETES MELLITUS
     Dosage: 1 TABLET, 1X/DAY
  9. OSCAL [Concomitant]
     Indication: OSTEOARTHRITIS
     Dosage: 1 TABLET, 2X/DAY
     Dates: start: 2011
  10. RIVOTRIL [Concomitant]
     Indication: SLEEP DISORDER
     Dosage: 0.25 MG, 1X/DAY
  11. ROSUVASTATIN [Concomitant]
     Indication: BLOOD CHOLESTEROL
     Dosage: 1 TABLET, 1X/DAY
     Dates: start: 2011
  12. TORAGESIC [Concomitant]
     Indication: PAIN
     Dosage: ONE TABLET, 1X/DAY
     Dates: start: 2011
  13. VITAMIN D3 [Concomitant]
     Dosage: 10 DROPS, DAILY
     Dates: start: 201210
  14. LAMOTRIGINE [Concomitant]
     Dosage: 100 MG, DAILY
  15. CLONAZEPAM [Concomitant]
     Dosage: 1 MG, DAILY
  16. DIVALPROATE [Concomitant]
     Dosage: 500 MG, DAILY

REACTIONS (3)
  - Intraocular pressure test abnormal [Not Recovered/Not Resolved]
  - Depression [Recovering/Resolving]
  - Anxiety [Recovering/Resolving]
